FAERS Safety Report 21018830 (Version 1)
Quarter: 2022Q2

REPORT INFORMATION
  Report Type: Spontaneous
  Country: US (occurrence: US)
  Receive Date: 20220628
  Receipt Date: 20220628
  Transmission Date: 20220721
  Serious: No
  Sender: FDA-Public Use
  Company Number: US-INCYTE CORPORATION-2022IN006139

PATIENT

DRUGS (3)
  1. JAKAFI [Suspect]
     Active Substance: RUXOLITINIB
     Indication: Myelofibrosis
     Dosage: 5 MILLIGRAM, BID, ADD 5MG TABLET TO EVENING DOSE FOR 10MG IN MORNING AND 15MG IN THE EVENING
     Route: 048
  2. JAKAFI [Suspect]
     Active Substance: RUXOLITINIB
     Dosage: 5 MILLIGRAM, BID
     Route: 048
  3. JAKAFI [Suspect]
     Active Substance: RUXOLITINIB
     Dosage: 10 MILLIGRAM, BID, ADD 5MG TABLET TO EVENING DOSE FOR 10MG IN MORNING AND 15MG IN THE EVENING
     Route: 048
     Dates: start: 20220413

REACTIONS (1)
  - COVID-19 [Unknown]
